FAERS Safety Report 5062101-7 (Version None)
Quarter: 2006Q3

REPORT INFORMATION
  Report Type: 
  Country: None (occurrence: None)
  Receive Date: 20060726
  Receipt Date: 20060714
  Transmission Date: 20061208
  Serious: Yes (Other)
  Sender: FDA-Public Use
  Company Number: ZA-ROCHE-455468

PATIENT
  Age: 30 Year
  Sex: Female
  Weight: 53 kg

DRUGS (4)
  1. ACCUTANE [Suspect]
     Indication: DRUG USE FOR UNKNOWN INDICATION
     Route: 048
     Dates: start: 20060415
  2. TOPAMAX [Suspect]
     Route: 048
  3. TEGRETOL [Suspect]
     Indication: DRUG USE FOR UNKNOWN INDICATION
     Dosage: 400 MG IN THE MORNING AND 200 MG IN THE EVENING.
     Route: 048
  4. KEPPRA [Concomitant]
     Indication: EPILEPSY
     Route: 050

REACTIONS (2)
  - MYOCLONIC EPILEPSY [None]
  - MYOCLONUS [None]
